FAERS Safety Report 11445074 (Version 1)
Quarter: 2015Q3

REPORT INFORMATION
  Report Type: Spontaneous
  Country: US (occurrence: None)
  Receive Date: 20150901
  Receipt Date: 20150901
  Transmission Date: 20151125
  Serious: Yes (Disabling)
  Sender: FDA-Public Use
  Company Number: None

PATIENT
  Age: 86 Year
  Sex: Female

DRUGS (1)
  1. MYRBETRIQ [Suspect]
     Active Substance: MIRABEGRON
     Indication: HYPERTONIC BLADDER
     Dosage: 25 MG 1 PILL 1 A DAY BY MOUTH
     Route: 048
     Dates: start: 20150807, end: 20150807

REACTIONS (11)
  - Headache [None]
  - Vision blurred [None]
  - Activities of daily living impaired [None]
  - Presyncope [None]
  - Malaise [None]
  - Asthenia [None]
  - Dizziness [None]
  - Tinnitus [None]
  - Hypotension [None]
  - Hypertension [None]
  - Back pain [None]
